FAERS Safety Report 5914758-3 (Version None)
Quarter: 2008Q4

REPORT INFORMATION
  Report Type: 
  Country: None (occurrence: None)
  Receive Date: 20081010
  Receipt Date: 20081007
  Transmission Date: 20090506
  Serious: Yes (Hospitalization)
  Sender: FDA-Public Use
  Company Number: IT-BRISTOL-MYERS SQUIBB COMPANY-14361406

PATIENT
  Age: 80 Year
  Sex: Male

DRUGS (7)
  1. COUMADIN [Suspect]
     Indication: THROMBOSIS PROPHYLAXIS
     Route: 048
     Dates: start: 19980809, end: 20080809
  2. ALLOPURINOL [Suspect]
     Dates: start: 20080512, end: 20080712
  3. CORTISONE [Suspect]
     Dosage: INTERRUPTED ON 24JUL08 PARENTRAL THERAPY GIVEN. 04AUG08 ORAL (DECREASING REGIMEN) REINTRODUCED
  4. LANOXIN [Concomitant]
  5. NAPRILENE [Concomitant]
  6. DILATREND [Concomitant]
  7. LASIX [Concomitant]

REACTIONS (4)
  - CARDIAC FAILURE [None]
  - DERMATITIS BULLOUS [None]
  - PRESYNCOPE [None]
  - RENAL FAILURE [None]
